FAERS Safety Report 6623802-X (Version None)
Quarter: 2010Q1

REPORT INFORMATION
  Report Type: 
  Country: None (occurrence: None)
  Receive Date: 20100310
  Receipt Date: 20100225
  Transmission Date: 20100710
  Serious: Yes (Other)
  Sender: FDA-Public Use
  Company Number: PHHY2010DE11065

PATIENT
  Age: 68 Year
  Sex: Male

DRUGS (3)
  1. ZOMETA [Suspect]
     Indication: OSTEOPOROSIS
     Dosage: 4MG/ 5ML
     Route: 042
  2. ZOMETA [Suspect]
     Indication: PLASMACYTOMA
  3. DEXAMETHASONE [Concomitant]
     Dosage: ONCE WEEKLY

REACTIONS (3)
  - BACTERIAL INFECTION [None]
  - OSTEONECROSIS [None]
  - TOOTH EXTRACTION [None]
